FAERS Safety Report 10178368 (Version 2)
Quarter: 2014Q2

REPORT INFORMATION
  Report Type: Spontaneous
  Country: JP (occurrence: JP)
  Receive Date: 20140519
  Receipt Date: 20140623
  Transmission Date: 20141212
  Serious: Yes (Hospitalization)
  Sender: FDA-Public Use
  Company Number: JP-ROCHE-1402685

PATIENT
  Age: 7 Decade
  Sex: Female

DRUGS (4)
  1. HERCEPTIN [Suspect]
     Indication: BREAST CANCER METASTATIC
     Route: 041
     Dates: start: 201401, end: 201401
  2. HERCEPTIN [Suspect]
     Indication: BREAST CANCER METASTATIC
     Dosage: DOSAGE IS UNCERTAIN.
     Route: 041
     Dates: start: 201401
  3. PERJETA [Suspect]
     Indication: BREAST CANCER METASTATIC
     Dosage: STRENGTH:420MG/14ML
     Route: 041
     Dates: start: 201401, end: 201401
  4. PERJETA [Suspect]
     Dosage: STRENGTH:420MG/14ML
     Route: 041
     Dates: start: 201401

REACTIONS (1)
  - Pneumothorax [Recovered/Resolved]
